FAERS Safety Report 5023745-1 (Version None)
Quarter: 2006Q2

REPORT INFORMATION
  Report Type: 
  Country: None (occurrence: None)
  Receive Date: 20060606
  Receipt Date: 20060524
  Transmission Date: 20061013
  Serious: Yes (Death)
  Sender: FDA-Public Use
  Company Number: 163-21880-06040238

PATIENT
  Age: 74 Year
  Sex: Male

DRUGS (19)
  1. REVLIMID [Suspect]
     Indication: MYELODYSPLASTIC SYNDROME
     Dosage: 10 MG DAILY ORAL
     Route: 048
     Dates: start: 20060228, end: 20060305
  2. EFFEXOR [Concomitant]
  3. RANITIDINE [Concomitant]
  4. LEVOXYL [Concomitant]
  5. PLAVIX [Concomitant]
  6. ASPIRIN [Concomitant]
  7. NIASPAN [Concomitant]
  8. PRAVACHOL [Concomitant]
  9. ADVAIR DISKUS 100/50 [Concomitant]
  10. ALBUTEROL [Concomitant]
  11. COMBIVENT [Concomitant]
  12. SPIRIVA [Concomitant]
  13. ACETYLCYSTIENE (ACETYLCYSTIENE) [Concomitant]
  14. SINGULAIR (MONTELEUKAST SODIUM) [Concomitant]
  15. HYDROCODONE BITARTRATE [Concomitant]
  16. VALIUM [Concomitant]
  17. FERROUS SULFATE ELIXIR (FERROUS SULFATE) [Concomitant]
  18. LORTAB [Concomitant]
  19. MORPHINE SULFATE [Concomitant]

REACTIONS (2)
  - GENERAL PHYSICAL HEALTH DETERIORATION [None]
  - PNEUMONIA ASPIRATION [None]
